FAERS Safety Report 6593575-8 (Version None)
Quarter: 2010Q1

REPORT INFORMATION
  Report Type: 
  Country: None (occurrence: None)
  Receive Date: 20100222
  Receipt Date: 20090720
  Transmission Date: 20100710
  Serious: No
  Sender: FDA-Public Use
  Company Number: US-BRISTOL-MYERS SQUIBB COMPANY-14731830

PATIENT
  Sex: Female

DRUGS (1)
  1. ORENCIA [Suspect]
     Dates: start: 20090714

REACTIONS (6)
  - ARTHRALGIA [None]
  - DECREASED ACTIVITY [None]
  - HEADACHE [None]
  - PAIN IN EXTREMITY [None]
  - PAIN OF SKIN [None]
  - POST PROCEDURAL INFECTION [None]
